FAERS Safety Report 8454852-9 (Version None)
Quarter: 2012Q2

REPORT INFORMATION
  Report Type: 
  Country: None (occurrence: None)
  Receive Date: 20120614
  Receipt Date: 20120601
  Transmission Date: 20120825
  Serious: Yes (Death, Other)
  Sender: FDA-Public Use
  Company Number: 2012MA007073

PATIENT
  Age: 17 Year
  Sex: Male

DRUGS (3)
  1. CHLORPHENIRAMINE TAB [Suspect]
     Indication: PRODUCT USED FOR UNKNOWN INDICATION
     Dosage: 21 TAB
  2. ISOTRETINOIN [Suspect]
     Indication: ACNE
     Dosage: 80 MG;QD;PO
     Route: 048
     Dates: start: 20100501
  3. FEVERALL (ACETAMINOPHEN RECTAL SUPPOSITOREIS) 650 MG (ALPHARMA) (PARAC [Suspect]
     Indication: PRODUCT USED FOR UNKNOWN INDICATION
     Dosage: 2 TAB

REACTIONS (13)
  - COMPLETED SUICIDE [None]
  - OROPHARYNGEAL PAIN [None]
  - ERYTHEMA [None]
  - SCAR [None]
  - ASPHYXIA [None]
  - DRY SKIN [None]
  - GASTRIC INFECTION [None]
  - PERSONALITY CHANGE [None]
  - LOCALISED INFECTION [None]
  - PAIN IN EXTREMITY [None]
  - LIP DRY [None]
  - INGROWING NAIL [None]
  - OVERDOSE [None]
